FAERS Safety Report 17536572 (Version 1)
Quarter: 2020Q1

REPORT INFORMATION
  Report Type: Spontaneous
  Country: GB (occurrence: GB)
  Receive Date: 20200313
  Receipt Date: 20200313
  Transmission Date: 20200409
  Serious: Yes (Hospitalization)
  Sender: FDA-Public Use
  Company Number: GB-TEVA-2020-GB-1199120

PATIENT
  Age: 83 Year
  Sex: Female
  Weight: 70 kg

DRUGS (12)
  1. BISOPROLOL [Concomitant]
     Active Substance: BISOPROLOL
  2. METFORMIN [Concomitant]
     Active Substance: METFORMIN HYDROCHLORIDE
     Dosage: 2 G
  3. NITROFURANTOIN. [Concomitant]
     Active Substance: NITROFURANTOIN
  4. RANITIDINE. [Concomitant]
     Active Substance: RANITIDINE
     Dosage: 300 MG
  5. GAVISCON ADVANCE [Concomitant]
     Active Substance: POTASSIUM BICARBONATE\SODIUM ALGINATE
     Dosage: 4 DF
  6. CLOPIDOGREL [Concomitant]
     Active Substance: CLOPIDOGREL BISULFATE
     Dosage: TO STOP OCT 2019, 45 MG
  7. APIXABAN [Concomitant]
     Active Substance: APIXABAN
     Dosage: 5 MG
  8. BETAHISTINE [Concomitant]
     Active Substance: BETAHISTINE
     Dosage: 48 MG
  9. GLICLAZIDE [Concomitant]
     Active Substance: GLICLAZIDE
     Dosage: 80 MG
  10. RAMIPRIL. [Suspect]
     Active Substance: RAMIPRIL
     Indication: RIGHT VENTRICULAR FAILURE
     Dosage: 2.5 MG
     Route: 048
     Dates: end: 20190823
  11. LEVOTHYROXINE. [Concomitant]
     Active Substance: LEVOTHYROXINE
     Dosage: OM, 75 MCG
  12. ATORVASTATIN [Concomitant]
     Active Substance: ATORVASTATIN
     Dosage: TEATIME, 40 MG

REACTIONS (7)
  - Right ventricular failure [Unknown]
  - Inappropriate antidiuretic hormone secretion [Unknown]
  - Oedema peripheral [Unknown]
  - Hyponatraemia [Recovered/Resolved]
  - Arthralgia [Unknown]
  - Osteoarthritis [Unknown]
  - Nodule [Unknown]

NARRATIVE: CASE EVENT DATE: 20190823
